FAERS Safety Report 6508545-5 (Version None)
Quarter: 2009Q4

REPORT INFORMATION
  Report Type: 
  Country: None (occurrence: None)
  Receive Date: 20091221
  Receipt Date: 20090514
  Transmission Date: 20100525
  Serious: No
  Sender: FDA-Public Use
  Company Number: US-ASTRAZENECA-2008UW26457

PATIENT
  Sex: Female

DRUGS (1)
  1. CRESTOR [Suspect]
     Dosage: UNKNOWN
     Route: 048

REACTIONS (6)
  - BRUXISM [None]
  - DENTAL DISCOMFORT [None]
  - FACIAL PAIN [None]
  - MUSCLE RIGIDITY [None]
  - SINUS HEADACHE [None]
  - TOOTH FRACTURE [None]
